FAERS Safety Report 7678275-5 (Version None)
Quarter: 2011Q3

REPORT INFORMATION
  Report Type: 
  Country: None (occurrence: None)
  Receive Date: 20110808
  Receipt Date: 20100526
  Transmission Date: 20111222
  Serious: Yes (Other)
  Sender: FDA-Public Use
  Company Number: 2010VX000229

PATIENT
  Age: 51 Year
  Sex: Male

DRUGS (1)
  1. CERAVE [Suspect]
     Indication: DRY SKIN
     Dosage: TOP
     Route: 061
     Dates: start: 20100124

REACTIONS (1)
  - DRUG HYPERSENSITIVITY [None]
